FAERS Safety Report 4683690-8 (Version None)
Quarter: 2005Q2

REPORT INFORMATION
  Report Type: 
  Country: None (occurrence: None)
  Receive Date: 20050607
  Receipt Date: 20050602
  Transmission Date: 20051028
  Serious: Yes (Other)
  Sender: FDA-Public Use
  Company Number: 200515071GDDC

PATIENT
  Age: 72 Year
  Sex: Male

DRUGS (5)
  1. FRUSEMIDE [Suspect]
     Route: 048
  2. AMIODARONE HYDROCHLORIDE [Suspect]
     Indication: EMBOLISM VENOUS
     Route: 048
     Dates: start: 19970523, end: 19970529
  3. AMIODARONE HYDROCHLORIDE [Suspect]
     Indication: THROMBOSIS
     Route: 048
     Dates: start: 19970523, end: 19970529
  4. CAPTOPRIL [Suspect]
     Route: 048
  5. AMITRIPTYLINE HYDROCHLORIDE [Suspect]
     Indication: DEPRESSION
     Route: 048
     Dates: end: 19970529

REACTIONS (3)
  - ALANINE AMINOTRANSFERASE INCREASED [None]
  - ASPARTATE AMINOTRANSFERASE INCREASED [None]
  - HEPATIC FUNCTION ABNORMAL [None]
